FAERS Safety Report 23203833 (Version 1)
Quarter: 2023Q4

REPORT INFORMATION
  Report Type: Spontaneous
  Country: US (occurrence: None)
  Receive Date: 20231120
  Receipt Date: 20231120
  Transmission Date: 20240110
  Serious: Yes (Disabling)
  Sender: FDA-Public Use
  Company Number: None

PATIENT
  Age: 32 Year
  Sex: Female
  Weight: 50.85 kg

DRUGS (6)
  1. LUPRON DEPOT [Suspect]
     Active Substance: LEUPROLIDE ACETATE
     Indication: Endometriosis
     Dates: start: 20221120, end: 20230220
  2. VIIBRYD [Concomitant]
     Active Substance: VILAZODONE HYDROCHLORIDE
  3. LUNESTA [Concomitant]
     Active Substance: ESZOPICLONE
  4. MAGNESIUM [Concomitant]
     Active Substance: MAGNESIUM
  5. glycinate [Concomitant]
  6. VITAMIN D [Concomitant]
     Active Substance: VITAMIN D NOS

REACTIONS (11)
  - Endometriosis [None]
  - Condition aggravated [None]
  - Amnesia [None]
  - Amnesia [None]
  - Cognitive disorder [None]
  - Drug hypersensitivity [None]
  - Autonomic neuropathy [None]
  - Vulvovaginal dryness [None]
  - Menstrual disorder [None]
  - Vaginal infection [None]
  - Oestrogen deficiency [None]

NARRATIVE: CASE EVENT DATE: 20230220
